FAERS Safety Report 12598665 (Version 1)
Quarter: 2016Q3

REPORT INFORMATION
  Report Type: Report from Study
  Country: US (occurrence: US)
  Receive Date: 20160727
  Receipt Date: 20160727
  Transmission Date: 20161109
  Serious: Yes (Death, Hospitalization)
  Sender: FDA-Public Use
  Company Number: US-JNJFOC-20160522359

PATIENT
  Age: 84 Year
  Sex: Male

DRUGS (11)
  1. METOPROLOL. [Concomitant]
     Active Substance: METOPROLOL
  2. FINASTERIDE. [Concomitant]
     Active Substance: FINASTERIDE
  3. LISINOPRIL. [Concomitant]
     Active Substance: LISINOPRIL
  4. OMEPRAZOLE. [Concomitant]
     Active Substance: OMEPRAZOLE
  5. POTASSIUM [Concomitant]
     Active Substance: POTASSIUM
  6. SERTRALINE HCL [Concomitant]
     Active Substance: SERTRALINE HYDROCHLORIDE
  7. IMBRUVICA [Suspect]
     Active Substance: IBRUTINIB
     Indication: PRODUCT USED FOR UNKNOWN INDICATION
     Route: 048
     Dates: start: 20150618, end: 2016
  8. LANTUS [Concomitant]
     Active Substance: INSULIN GLARGINE
  9. FUROSEMIDE. [Concomitant]
     Active Substance: FUROSEMIDE
  10. MORNIFLUMATE [Concomitant]
     Active Substance: MORNIFLUMATE
  11. TRAMADOL. [Concomitant]
     Active Substance: TRAMADOL

REACTIONS (4)
  - Hospitalisation [Unknown]
  - Off label use [Not Recovered/Not Resolved]
  - Product use issue [Not Recovered/Not Resolved]
  - Cardiac failure congestive [Fatal]

NARRATIVE: CASE EVENT DATE: 20150618
